FAERS Safety Report 6390945-8 (Version None)
Quarter: 2009Q4

REPORT INFORMATION
  Report Type: 
  Country: None (occurrence: None)
  Receive Date: 20091001
  Receipt Date: 20090609
  Transmission Date: 20100525
  Serious: No
  Sender: FDA-Public Use
  Company Number: 1000006706

PATIENT
  Age: 82 Year
  Sex: Female

DRUGS (8)
  1. BYSTOLIC [Suspect]
     Indication: ARRHYTHMIA
     Dosage: 1.25 MG (1.25 MG, 1 IN 1 D), ORAL
     Route: 048
     Dates: start: 20090501
  2. BYSTOLIC [Suspect]
     Indication: TACHYCARDIA
     Dosage: 1.25 MG (1.25 MG, 1 IN 1 D), ORAL
     Route: 048
     Dates: start: 20090501
  3. ASPIRIN [Concomitant]
  4. CARDURA [Concomitant]
  5. ALDACTAZIDE [Concomitant]
  6. LIPITOR [Concomitant]
  7. PRILOSEC [Concomitant]
  8. COUMADIN [Concomitant]

REACTIONS (1)
  - CYST [None]
